FAERS Safety Report 7243691-2 (Version None)
Quarter: 2011Q1

REPORT INFORMATION
  Report Type: 
  Country: None (occurrence: None)
  Receive Date: 20110125
  Receipt Date: 20110119
  Transmission Date: 20110831
  Serious: Yes (Other)
  Sender: FDA-Public Use
  Company Number: US-PFIZER INC-2011014941

PATIENT
  Sex: Female
  Weight: 90.703 kg

DRUGS (1)
  1. DEPO-PROVERA [Suspect]

REACTIONS (1)
  - WEIGHT INCREASED [None]
